FAERS Safety Report 6291173-7 (Version None)
Quarter: 2009Q3

REPORT INFORMATION
  Report Type: 
  Country: None (occurrence: None)
  Receive Date: 20090729
  Receipt Date: 20090729
  Transmission Date: 20100115
  Serious: Yes (Other)
  Sender: FDA-Public Use
  Company Number: None

PATIENT
  Age: 42 Year
  Sex: Female
  Weight: 76 kg

DRUGS (1)
  1. LACTATED RINGER'S [Suspect]
     Indication: DELIVERY
     Dosage: 1000 ML IV DRIP
     Route: 041
     Dates: start: 20090617, end: 20090617

REACTIONS (3)
  - CHEST DISCOMFORT [None]
  - COUGH [None]
  - DYSPNOEA [None]
